FAERS Safety Report 25385697 (Version 1)
Quarter: 2025Q2

REPORT INFORMATION
  Report Type: Spontaneous
  Country: EE (occurrence: EE)
  Receive Date: 20250602
  Receipt Date: 20250602
  Transmission Date: 20250716
  Serious: Yes (Death, Life-Threatening, Hospitalization, Other)
  Sender: EPIC PHARM
  Company Number: EE-EPICPHARMA-EE-2025EPCLIT00650

PATIENT
  Age: 20 Year
  Sex: Male

DRUGS (3)
  1. AMPHETAMINE SULFATE [Suspect]
     Active Substance: AMPHETAMINE SULFATE
     Indication: Product used for unknown indication
     Route: 065
  2. METHAMPHETAMINE HYDROCHLORIDE [Suspect]
     Active Substance: METHAMPHETAMINE HYDROCHLORIDE
     Indication: Product used for unknown indication
     Route: 065
  3. MIDOMAFETAMINE [Suspect]
     Active Substance: MIDOMAFETAMINE
     Indication: Product used for unknown indication
     Route: 065

REACTIONS (27)
  - Brainstem compression [Fatal]
  - Loss of consciousness [Fatal]
  - Generalised tonic-clonic seizure [Fatal]
  - Multiple organ dysfunction syndrome [Fatal]
  - Rhabdomyolysis [Fatal]
  - Hypothermia [Fatal]
  - Disseminated intravascular coagulation [Fatal]
  - Distributive shock [Fatal]
  - Cardiovascular insufficiency [Fatal]
  - Respiratory failure [Fatal]
  - Renal failure [Fatal]
  - Hepatic failure [Fatal]
  - Hyperkalaemia [Fatal]
  - Hyponatraemia [Fatal]
  - Metabolic acidosis [Fatal]
  - Hyperlactacidaemia [Fatal]
  - Sinus tachycardia [Fatal]
  - Hypovolaemia [Fatal]
  - Skin abrasion [Fatal]
  - Hypoglycaemia [Fatal]
  - Mucosal haemorrhage [Fatal]
  - Gastrointestinal disorder [Fatal]
  - Toxicity to various agents [Fatal]
  - Hyperthermia [Fatal]
  - Tachycardia [Fatal]
  - Diarrhoea [Fatal]
  - Coma [Fatal]
